FAERS Safety Report 8885042 (Version 1)
Quarter: 2012Q4

REPORT INFORMATION
  Report Type: 
  Country: DE (occurrence: DE)
  Receive Date: 20121102
  Receipt Date: 20121102
  Transmission Date: 20130627
  Serious: Yes (Death)
  Sender: FDA-Public Use
  Company Number: DE-ACTELION-A-CH2012-73268

PATIENT
  Age: 73 Year
  Sex: Female

DRUGS (5)
  1. TRACLEER [Suspect]
     Indication: DIGITAL ULCER
     Dosage: 62.5 mg, bid
     Route: 048
     Dates: start: 20120413
  2. PENTOXIFYLLIN [Concomitant]
     Dosage: 600 mg, UNK
  3. PREDNISOLONE [Concomitant]
     Dosage: 15 mg, UNK
  4. ASS [Concomitant]
  5. LISINOPRIL [Concomitant]

REACTIONS (1)
  - Death [Fatal]
